FAERS Safety Report 14095544 (Version 2)
Quarter: 2017Q4

REPORT INFORMATION
  Report Type: Spontaneous
  Country: KR (occurrence: KR)
  Receive Date: 20171017
  Receipt Date: 20171221
  Transmission Date: 20180321
  Serious: Yes (Hospitalization, Other)
  Sender: FDA-Public Use
  Company Number: KR-SUN PHARMACEUTICAL INDUSTRIES LTD-2017R1-152447

PATIENT
  Age: 75 Year
  Sex: Male

DRUGS (2)
  1. ERGOCALCIFEROL. [Suspect]
     Active Substance: ERGOCALCIFEROL
     Indication: HYPOPARATHYROIDISM
     Dosage: 50000 IU, DAILY  (FOR 1 YEAR)
     Route: 065
  2. CALCIUM CITRATE [Suspect]
     Active Substance: CALCIUM CITRATE
     Indication: HYPOPARATHYROIDISM
     Dosage: 500 MG, DAILY (FOR 1 YEAR)
     Route: 065

REACTIONS (6)
  - Hypercalcaemia [Recovered/Resolved]
  - Hypervitaminosis D [Unknown]
  - Mental status changes [Unknown]
  - Drug ineffective [Unknown]
  - Heart injury [Unknown]
  - Acute myocardial infarction [Unknown]
